FAERS Safety Report 4465786-9 (Version None)
Quarter: 2004Q4

REPORT INFORMATION
  Report Type: 
  Country: None (occurrence: None)
  Receive Date: 20041005
  Receipt Date: 20040928
  Transmission Date: 20050328
  Serious: Yes (Hospitalization)
  Sender: FDA-Public Use
  Company Number: JP-JNJFOC-20040301450

PATIENT
  Sex: Female

DRUGS (16)
  1. REMICADE [Suspect]
     Route: 041
     Dates: start: 20031016
  2. REMICADE [Suspect]
     Route: 041
     Dates: start: 20031016
  3. REMICADE [Suspect]
     Indication: RHEUMATOID ARTHRITIS
     Route: 041
     Dates: start: 20031016
  4. RHEUMATREX [Suspect]
     Route: 049
     Dates: start: 20030919, end: 20040301
  5. RHEUMATREX [Suspect]
     Indication: RHEUMATOID ARTHRITIS
     Route: 049
     Dates: start: 20030919, end: 20040301
  6. PREDNISOLONE [Suspect]
     Indication: RHEUMATOID ARTHRITIS
     Route: 049
     Dates: start: 20031003, end: 20040303
  7. PREDNISOLONE [Suspect]
     Route: 041
     Dates: start: 20040304
  8. CLINORIL [Concomitant]
     Indication: RHEUMATOID ARTHRITIS
     Dosage: STARTED ABOUT 10 YEARS AGO
     Route: 049
  9. FOLIAMIN [Concomitant]
     Route: 049
     Dates: start: 20031003, end: 20040226
  10. EVOXAC [Concomitant]
     Route: 049
  11. THYRADIN-S [Concomitant]
     Dosage: STARTED ABOUT 15 YEARS AGO
     Route: 049
  12. GASTER D [Concomitant]
     Route: 049
  13. LASIX [Concomitant]
     Route: 049
     Dates: end: 20040303
  14. DIAZEPAM [Concomitant]
     Route: 049
     Dates: end: 20040303
  15. ONEALFA [Concomitant]
     Route: 049
     Dates: end: 20040303
  16. SELENAL [Concomitant]
     Route: 049

REACTIONS (6)
  - BLOOD ALKALINE PHOSPHATASE INCREASED [None]
  - BLOOD LACTATE DEHYDROGENASE DECREASED [None]
  - HAEMATOCRIT DECREASED [None]
  - LYMPHOCYTE COUNT DECREASED [None]
  - MONOCYTE PERCENTAGE INCREASED [None]
  - PNEUMOCYSTIS CARINII PNEUMONIA [None]
